FAERS Safety Report 4615249-2 (Version None)
Quarter: 2005Q1

REPORT INFORMATION
  Report Type: 
  Country: None (occurrence: None)
  Receive Date: 20050317
  Receipt Date: 20050308
  Transmission Date: 20050727
  Serious: Yes (Death)
  Sender: FDA-Public Use
  Company Number: HQWYE003610MAR05

PATIENT
  Age: 62 Year
  Sex: Female

DRUGS (2)
  1. ZOSYN [Suspect]
     Indication: INFECTION
  2. FLUCONAZOLE [Suspect]
     Indication: INFECTION

REACTIONS (3)
  - MULTI-ORGAN FAILURE [None]
  - NECROTISING FASCIITIS STAPHYLOCOCCAL [None]
  - POST PROCEDURAL COMPLICATION [None]
